FAERS Safety Report 6662347-8 (Version None)
Quarter: 2010Q1

REPORT INFORMATION
  Report Type: 
  Country: None (occurrence: None)
  Receive Date: 20100331
  Receipt Date: 20090810
  Transmission Date: 20100710
  Serious: No
  Sender: FDA-Public Use
  Company Number: US-ABBOTT-09P-163-0590738-00

PATIENT
  Sex: Female
  Weight: 49.94 kg

DRUGS (2)
  1. LUPRON DEPOT [Suspect]
     Indication: UTERINE LEIOMYOMA
     Dates: start: 20090707, end: 20090707
  2. TOPROL-XL [Concomitant]
     Indication: HYPERTENSION

REACTIONS (6)
  - ARTHRALGIA [None]
  - BUTTERFLY RASH [None]
  - HEADACHE [None]
  - LETHARGY [None]
  - MUSCLE FATIGUE [None]
  - RASH [None]
